FAERS Safety Report 4550081-X (Version None)
Quarter: 2005Q1

REPORT INFORMATION
  Report Type: 
  Country: None (occurrence: None)
  Receive Date: 20050110
  Receipt Date: 20041228
  Transmission Date: 20050727
  Serious: Yes (Hospitalization, Other)
  Sender: FDA-Public Use
  Company Number: 2004121955

PATIENT
  Age: 40 Year
  Sex: Female
  Weight: 68.0396 kg

DRUGS (3)
  1. CELEBREX [Suspect]
     Indication: OSTEOARTHRITIS
     Dosage: 400 MG (200 MG, 2 IN 1 D), ORAL
     Route: 048
     Dates: start: 20020101
  2. ATENOLOL [Concomitant]
  3. FLECAINIDE ACETATE [Concomitant]

REACTIONS (3)
  - CONDITION AGGRAVATED [None]
  - POST PROCEDURAL COMPLICATION [None]
  - VENTRICULAR EXTRASYSTOLES [None]
